FAERS Safety Report 23909445 (Version 1)
Quarter: 2024Q2

REPORT INFORMATION
  Report Type: Spontaneous
  Country: US (occurrence: US)
  Receive Date: 20240528
  Receipt Date: 20240528
  Transmission Date: 20240715
  Serious: No
  Sender: FDA-Public Use
  Company Number: US-PERRIGO-23US007281

PATIENT
  Age: 80 Year
  Sex: Female

DRUGS (1)
  1. MINOXIDIL [Suspect]
     Active Substance: MINOXIDIL
     Indication: Alopecia
     Dosage: A LITTLE MORE THAN 0.5 CAPFULL, SINGLE
     Route: 061
     Dates: start: 20230622, end: 20230622

REACTIONS (4)
  - Trichorrhexis [Not Recovered/Not Resolved]
  - Hair injury [Not Recovered/Not Resolved]
  - Wrong technique in product usage process [Unknown]
  - Off label use [Unknown]

NARRATIVE: CASE EVENT DATE: 20230622
